FAERS Safety Report 4433788-4 (Version None)
Quarter: 2004Q3

REPORT INFORMATION
  Report Type: 
  Country: None (occurrence: None)
  Receive Date: 20040824
  Receipt Date: 20040819
  Transmission Date: 20050211
  Serious: Yes (Hospitalization)
  Sender: FDA-Public Use
  Company Number: LTI2004A00190

PATIENT
  Age: 56 Year
  Sex: Female

DRUGS (7)
  1. LANSOPRAZOLE [Suspect]
  2. DOMPERIDONE (DOMPERIDONE) [Suspect]
  3. LESCOL [Suspect]
     Dosage: 40 MG, ORAL; 80 MG. OCCLUSIVE DRESSING TECHNIQUE
     Dates: end: 20031201
  4. LESCOL [Suspect]
     Dosage: 40 MG, ORAL; 80 MG. OCCLUSIVE DRESSING TECHNIQUE
     Dates: start: 20031201
  5. VIOXX [Suspect]
  6. ACETAMINOPHEN [Suspect]
  7. SECTRAL [Suspect]
     Dosage: 100 MG, ORAL
     Route: 048

REACTIONS (11)
  - ANAEMIA MACROCYTIC [None]
  - ANTINUCLEAR ANTIBODY POSITIVE [None]
  - AUTOIMMUNE THYROIDITIS [None]
  - CHOLESTASIS [None]
  - CYTOLYTIC HEPATITIS [None]
  - GAIT DISTURBANCE [None]
  - HEPATIC CIRRHOSIS [None]
  - HEPATOMEGALY [None]
  - HYALURONIC ACID INCREASED [None]
  - PROTHROMBIN TIME RATIO INCREASED [None]
  - SMOOTH MUSCLE ANTIBODY POSITIVE [None]
